FAERS Safety Report 8618091 (Version 4)
Quarter: 2012Q4

REPORT INFORMATION
  Report Type: 
  Country: US (occurrence: US)
  Receive Date: 20120615
  Receipt Date: 20120911
  Transmission Date: 20130627
  Serious: Yes (Other)
  Sender: FDA-Public Use
  Company Number: US-ROCHE-788846

PATIENT
  Age: 25 None
  Sex: Female
  Weight: 44.04 kg

DRUGS (5)
  1. ACCUTANE [Suspect]
     Indication: ACNE
     Route: 048
  2. ACCUTANE [Suspect]
     Route: 065
  3. ACCUTANE [Suspect]
     Route: 065
     Dates: start: 199710, end: 199809
  4. ACCUTANE [Suspect]
     Dosage: Dose: 40 mg qhs and 10 mg qAM
     Route: 065
     Dates: start: 19991107, end: 200007
  5. MINOCIN [Concomitant]
     Route: 048

REACTIONS (10)
  - Colitis ulcerative [Unknown]
  - Proctitis ulcerative [Unknown]
  - Inflammatory bowel disease [Unknown]
  - Emotional distress [Unknown]
  - Anal fissure [Unknown]
  - Blood cholesterol increased [Unknown]
  - Upper extremity mass [Unknown]
  - Malignant neoplasm of cornea [Unknown]
  - Skin discolouration [Unknown]
  - Irritable bowel syndrome [Unknown]
